FAERS Safety Report 23585820 (Version 3)
Quarter: 2024Q1

REPORT INFORMATION
  Report Type: Spontaneous
  Country: US (occurrence: US)
  Receive Date: 20240301
  Receipt Date: 20240320
  Transmission Date: 20240409
  Serious: Yes (Other)
  Sender: FDA-Public Use
  Company Number: US-BAYER-2024A027585

PATIENT
  Age: 45 Year
  Sex: Female
  Weight: 165.99 kg

DRUGS (2)
  1. MIRENA [Suspect]
     Active Substance: LEVONORGESTREL
     Indication: Endometrial hyperplasia
     Dosage: 20?G/DAY
     Route: 015
     Dates: start: 20180423, end: 20230929
  2. MIRENA [Suspect]
     Active Substance: LEVONORGESTREL
     Indication: Heavy menstrual bleeding

REACTIONS (5)
  - Device breakage [None]
  - Device expulsion [None]
  - Complication of device removal [None]
  - Abdominal pain lower [None]
  - Device use issue [None]

NARRATIVE: CASE EVENT DATE: 20230911
